FAERS Safety Report 15511896 (Version 2)
Quarter: 2018Q4

REPORT INFORMATION
  Report Type: Spontaneous
  Country: US (occurrence: US)
  Receive Date: 20181016
  Receipt Date: 20181212
  Transmission Date: 20190205
  Serious: No
  Sender: FDA-Public Use
  Company Number: US-BAUSCH-BL-2018-026575

PATIENT
  Age: 53 Year
  Sex: Female
  Weight: 59.02 kg

DRUGS (2)
  1. ENALAPRIL [Concomitant]
     Active Substance: ENALAPRIL
     Indication: PRODUCT USED FOR UNKNOWN INDICATION
  2. LUMIFY [Suspect]
     Active Substance: BRIMONIDINE TARTRATE
     Indication: OCULAR HYPERAEMIA
     Dosage: ONE DROP IN EACH EYE ONCE
     Route: 047
     Dates: start: 20180925, end: 20180925

REACTIONS (1)
  - Eye colour change [Recovered/Resolved]

NARRATIVE: CASE EVENT DATE: 20180925
